FAERS Safety Report 10007170 (Version 1)
Quarter: 2014Q1

REPORT INFORMATION
  Report Type: Spontaneous
  Country: US (occurrence: None)
  Receive Date: 20140312
  Receipt Date: 20140312
  Transmission Date: 20141002
  Serious: Yes (Other)
  Sender: FDA-Public Use
  Company Number: None

PATIENT
  Sex: 0

DRUGS (6)
  1. ETOPOSIDE [Suspect]
     Indication: LYMPHOMA
     Route: 042
  2. ETOPOSIDE [Suspect]
     Indication: LUNG NEOPLASM MALIGNANT
     Route: 042
  3. ODANSETRON [Concomitant]
  4. DEXAMETHASONE [Concomitant]
  5. APREPITANT [Concomitant]
  6. CISPLATIN [Concomitant]

REACTIONS (11)
  - Chest pain [None]
  - Tinnitus [None]
  - Headache [None]
  - Vision blurred [None]
  - Infusion related reaction [None]
  - Hyperhidrosis [None]
  - Flushing [None]
  - Nausea [None]
  - Dyspnoea [None]
  - Hypoxia [None]
  - Product quality issue [None]
